FAERS Safety Report 5201663-3 (Version None)
Quarter: 2007Q1

REPORT INFORMATION
  Report Type: 
  Country: None (occurrence: None)
  Receive Date: 20070108
  Receipt Date: 20070102
  Transmission Date: 20070707
  Serious: Yes (Hospitalization)
  Sender: FDA-Public Use
  Company Number: ES-BOEHRINGER INGELHEIM PHARMACEUTICALS, INC.-2007-ES-00002ES

PATIENT
  Age: 38 Year
  Sex: Female

DRUGS (3)
  1. VIRAMUNE [Suspect]
     Indication: HIV INFECTION
     Route: 048
     Dates: start: 20060323, end: 20060402
  2. KALETRA [Suspect]
     Indication: HIV INFECTION
     Dosage: UNIT OF PRESENTATION
     Route: 048
     Dates: start: 20041020, end: 20060402
  3. VIDEX [Suspect]
     Indication: HIV INFECTION
     Route: 048
     Dates: start: 20041020, end: 20060402

REACTIONS (2)
  - DYSPNOEA [None]
  - RASH [None]
